FAERS Safety Report 23266537 (Version 2)
Quarter: 2023Q4

REPORT INFORMATION
  Report Type: Report from Study
  Country: US (occurrence: US)
  Receive Date: 20231206
  Receipt Date: 20231228
  Transmission Date: 20240110
  Serious: Yes (Other)
  Sender: FDA-Public Use
  Company Number: US-ABBVIE-5520637

PATIENT
  Sex: Female

DRUGS (1)
  1. RINVOQ [Suspect]
     Active Substance: UPADACITINIB
     Indication: Rheumatoid arthritis
     Route: 048
     Dates: start: 20220223

REACTIONS (4)
  - Anaemia [Recovered/Resolved]
  - Osteoporosis [Recovering/Resolving]
  - Arthralgia [Recovering/Resolving]
  - Transfusion reaction [Unknown]

NARRATIVE: CASE EVENT DATE: 20230101
